FAERS Safety Report 17571761 (Version 1)
Quarter: 2020Q1

REPORT INFORMATION
  Report Type: Spontaneous
  Country: US (occurrence: US)
  Receive Date: 20200323
  Receipt Date: 20200323
  Transmission Date: 20200409
  Serious: No
  Sender: FDA-Public Use
  Company Number: US-VERTEX PHARMACEUTICALS-2020-006012

PATIENT
  Sex: Male
  Weight: 42 kg

DRUGS (1)
  1. TRIKAFTA [Suspect]
     Active Substance: ELEXACAFTOR\IVACAFTOR\TEZACAFTOR
     Indication: CYSTIC FIBROSIS
     Dosage: 100MG ELEXACAFTOR/ 50MG TEZACAFTOR/ 75MG IVACAFTOR AND 150MG IVACAFTOR BID
     Route: 048
     Dates: start: 20200307

REACTIONS (2)
  - Abdominal pain [Recovered/Resolved]
  - Rash [Recovering/Resolving]
